FAERS Safety Report 18626744 (Version 1)
Quarter: 2020Q4

REPORT INFORMATION
  Report Type: Report from Study
  Country: ES (occurrence: ES)
  Receive Date: 20201217
  Receipt Date: 20201217
  Transmission Date: 20210114
  Serious: Yes (Death)
  Sender: FDA-Public Use
  Company Number: ES-GYP-000015

PATIENT

DRUGS (2)
  1. IBRUTINIB [Concomitant]
     Active Substance: IBRUTINIB
     Indication: PRODUCT USED FOR UNKNOWN INDICATION
     Dosage: 420 MG/1 IN 1 TO 2 (UNSPECIFIED)
     Route: 065
  2. PREDNISONE. [Suspect]
     Active Substance: PREDNISONE
     Indication: PRODUCT USED FOR UNKNOWN INDICATION
     Dosage: 20 MG/1 IN 1 (UNSPECIFIED)
     Route: 065

REACTIONS (2)
  - Disease recurrence [Fatal]
  - Leukaemia [Fatal]
